FAERS Safety Report 4988243-X (Version None)
Quarter: 2006Q2

REPORT INFORMATION
  Report Type: 
  Country: None (occurrence: None)
  Receive Date: 20060425
  Receipt Date: 20060413
  Transmission Date: 20061013
  Serious: Yes (Death, Life-Threatening, Other)
  Sender: FDA-Public Use
  Company Number: 2006051317

PATIENT
  Age: 50 Year
  Sex: Male

DRUGS (4)
  1. CLINDAMYCIN PHOSPHATE [Suspect]
     Indication: PNEUMONIA ASPIRATION
     Dosage: 1200 MG (UNKNOWN); INTRAVENOUS
     Route: 042
  2. SULPERAZON (SULBACTAM, CEFOPERAZONE) [Suspect]
     Indication: PNEUMONIA ASPIRATION
     Dosage: 2 GRAM (UNKNOWN); INTRAVENOUS
     Route: 042
  3. RISPERDAL [Concomitant]
  4. PIPERACILLIN [Concomitant]

REACTIONS (3)
  - HAEMOGLOBIN DECREASED [None]
  - MELAENA [None]
  - PROTHROMBIN TIME PROLONGED [None]
